FAERS Safety Report 12666327 (Version 7)
Quarter: 2018Q2

REPORT INFORMATION
  Report Type: Spontaneous
  Country: FR (occurrence: FR)
  Receive Date: 20160818
  Receipt Date: 20180405
  Transmission Date: 20180711
  Serious: Yes (Disabling, Congenital Anomaly, Other)
  Sender: FDA-Public Use
  Company Number: FR-ABBVIE-16P-056-1637339-00

PATIENT
  Sex: Male

DRUGS (2)
  1. NEURONTIN [Concomitant]
     Active Substance: GABAPENTIN
     Indication: PRODUCT USED FOR UNKNOWN INDICATION
     Route: 065
  2. DEPAKINE CHRONO [Suspect]
     Active Substance: VALPROATE SODIUM
     Indication: MATERNAL EXPOSURE TIMING UNSPECIFIED
     Route: 064

REACTIONS (28)
  - Intellectual disability [Not Recovered/Not Resolved]
  - Foetal exposure during pregnancy [Unknown]
  - Obesity [Unknown]
  - Congenital anomaly [Unknown]
  - Disability [Not Recovered/Not Resolved]
  - Ear, nose and throat examination abnormal [Unknown]
  - Motor dysfunction [Unknown]
  - Educational problem [Unknown]
  - Foetal anticonvulsant syndrome [Unknown]
  - Haemangioma [Unknown]
  - Hemiparesis [Unknown]
  - Attention deficit/hyperactivity disorder [Unknown]
  - Bulimia nervosa [Unknown]
  - Anxiety [Unknown]
  - Dyscalculia [Unknown]
  - Communication disorder [Unknown]
  - Fatigue [Unknown]
  - Hypertonia [Unknown]
  - Dyspraxia [Unknown]
  - Psychomotor skills impaired [Unknown]
  - Visual impairment [Unknown]
  - Disturbance in attention [Unknown]
  - Nervous system disorder [Unknown]
  - Hypotonia [Not Recovered/Not Resolved]
  - Speech disorder developmental [Unknown]
  - Intellectual disability [Unknown]
  - Neurodevelopmental disorder [Unknown]
  - Dysmorphism [Unknown]
